FAERS Safety Report 18618403 (Version 1)
Quarter: 2020Q4

REPORT INFORMATION
  Report Type: Spontaneous
  Country: IT (occurrence: IT)
  Receive Date: 20201215
  Receipt Date: 20201215
  Transmission Date: 20210114
  Serious: Yes (Hospitalization)
  Sender: FDA-Public Use
  Company Number: IT-TEVA-2020-IT-1857471

PATIENT
  Age: 13 Year
  Sex: Male
  Weight: 69 kg

DRUGS (8)
  1. LEDERFOLIN [Concomitant]
     Active Substance: LEUCOVORIN CALCIUM
     Dosage: 127MG
     Route: 042
  2. DOXORUBICIN HYDROCHLORIDE. [Suspect]
     Active Substance: DOXORUBICIN HYDROCHLORIDE
     Indication: OSTEOSARCOMA
     Dosage: 63.75MG
     Route: 042
     Dates: start: 20200824, end: 20200824
  3. DOXORUBICIN HYDROCHLORIDE. [Suspect]
     Active Substance: DOXORUBICIN HYDROCHLORIDE
     Indication: OSTEOSARCOMA
     Dosage: 55.5MG
     Route: 042
     Dates: start: 20200825, end: 20200825
  4. CISPLATIN. [Suspect]
     Active Substance: CISPLATIN
     Indication: OSTEOSARCOMA
     Dosage: 102MG
     Route: 042
     Dates: start: 20200822, end: 20200823
  5. ZOFRAN [Concomitant]
     Active Substance: ONDANSETRON HYDROCHLORIDE
     Dosage: 24MG
     Route: 042
  6. ANTRA [Concomitant]
     Active Substance: OMEPRAZOLE
     Dosage: 40MG
  7. EMEND [Concomitant]
     Active Substance: APREPITANT
     Dosage: 125MG
     Route: 048
  8. TRIMETON [Concomitant]
     Active Substance: CHLORPHENIRAMINE MALEATE
     Dosage: 20MG
     Route: 042

REACTIONS (3)
  - Thrombocytopenia [Recovering/Resolving]
  - Pharyngitis [Recovering/Resolving]
  - Pyrexia [Recovering/Resolving]

NARRATIVE: CASE EVENT DATE: 20200904
